FAERS Safety Report 9856195 (Version 2)
Quarter: 2014Q1

REPORT INFORMATION
  Report Type: Report from Study
  Country: AT (occurrence: AT)
  Receive Date: 20140130
  Receipt Date: 20140130
  Transmission Date: 20141002
  Serious: Yes (Death, Life-Threatening, Hospitalization, Other)
  Sender: FDA-Public Use
  Company Number: AT-ASTELLAS-2013EU001092

PATIENT
  Age: 61 Year
  Sex: Male
  Weight: 70.7 kg

DRUGS (13)
  1. TACROLIMUS CAPSULES [Suspect]
     Indication: ORGAN TRANSPLANT
     Dosage: 4 MG, BID
     Route: 048
     Dates: start: 20130118, end: 20130121
  2. TACROLIMUS CAPSULES [Suspect]
     Dosage: 6 MG, BID
     Route: 048
     Dates: start: 20130122
  3. ACECOMB [Concomitant]
     Indication: HYPERTENSION
     Dosage: 10 MG, UID/QD
     Route: 048
     Dates: start: 20130118
  4. CONCOR COR [Concomitant]
     Indication: HYPERTENSION
     Dosage: 5 MG, UID/QD
     Route: 048
     Dates: start: 20130118
  5. TAVANIC [Concomitant]
     Indication: RHODOCOCCUS INFECTION
     Dosage: 125 MG, BID
     Route: 048
     Dates: start: 20130118
  6. RIFOLDIN [Concomitant]
     Indication: RHODOCOCCUS INFECTION
     Dosage: 600 MG, UID/QD
     Route: 048
     Dates: start: 20130118
  7. APREDNISLON [Concomitant]
     Dosage: 5 MG, UNKNOWN/D
     Route: 065
  8. FORTIS [Concomitant]
     Dosage: 20 MG, UNKNOWN/D
     Route: 065
  9. CAL-D-VITA [Concomitant]
     Dosage: UNK
     Route: 065
  10. LIDAPRIM                           /00525601/ [Concomitant]
     Dosage: UNK
     Route: 065
  11. PANTOLAX [Concomitant]
     Dosage: 40 MG, UNKNOWN/D
     Route: 065
  12. FOSAMAX [Concomitant]
     Dosage: 70 MG, UNKNOWN/D
     Route: 065
  13. MYFORTIC [Concomitant]
     Dosage: 360 MG, UNKNOWN/D
     Route: 065

REACTIONS (4)
  - Candida sepsis [Fatal]
  - Bronchopulmonary aspergillosis [Fatal]
  - Respiratory failure [Fatal]
  - Pulmonary embolism [Fatal]
